FAERS Safety Report 8911123 (Version 4)
Quarter: 2013Q1

REPORT INFORMATION
  Report Type: Spontaneous
  Country: US (occurrence: US)
  Receive Date: 20121115
  Receipt Date: 20130212
  Transmission Date: 20140127
  Serious: Yes (Hospitalization, Congenital Anomaly, Other)
  Sender: FDA-Public Use
  Company Number: US-JNJFOC-20121106795

PATIENT
  Sex: Male

DRUGS (6)
  1. TOPAMAX [Suspect]
     Indication: FOETAL EXPOSURE DURING PREGNANCY
     Route: 064
     Dates: start: 20080506, end: 200810
  2. TOPAMAX [Suspect]
     Indication: FOETAL EXPOSURE DURING PREGNANCY
     Route: 064
     Dates: start: 200610, end: 200710
  3. ZOMIG [Suspect]
     Indication: FOETAL EXPOSURE DURING PREGNANCY
     Route: 064
  4. PROPOXYPHENE NAPSYLATE/ ACETAMINOPHEN [Suspect]
     Indication: FOETAL EXPOSURE DURING PREGNANCY
     Route: 064
  5. ALDOMET [Suspect]
     Indication: FOETAL EXPOSURE DURING PREGNANCY
     Route: 064
  6. AMPICILLIN [Suspect]
     Indication: FOETAL EXPOSURE DURING PREGNANCY
     Route: 064

REACTIONS (22)
  - Ventricular septal defect [Recovering/Resolving]
  - Premature baby [Not Recovered/Not Resolved]
  - Double outlet right ventricle [Recovering/Resolving]
  - Atrial septal defect [Recovering/Resolving]
  - Cardiac failure congestive [Recovered/Resolved]
  - Persistent left superior vena cava [Unknown]
  - Tracheo-oesophageal fistula [Recovering/Resolving]
  - Oesophageal atresia [Recovering/Resolving]
  - Tracheomalacia [Unknown]
  - Pneumonia aspiration [Recovering/Resolving]
  - Cleft uvula [Unknown]
  - Hiatus hernia [Unknown]
  - Laryngeal cleft [Recovering/Resolving]
  - Cleft palate [Unknown]
  - Developmental delay [Unknown]
  - Macrocephaly [Unknown]
  - Plagiocephaly [Unknown]
  - Facial asymmetry [Unknown]
  - Limb malformation [Unknown]
  - Kidney malformation [Unknown]
  - Lung disorder [Unknown]
  - Anal atresia [Unknown]
